FAERS Safety Report 7928703-2 (Version None)
Quarter: 2011Q4

REPORT INFORMATION
  Report Type: 
  Country: None (occurrence: None)
  Receive Date: 20111118
  Receipt Date: 20111114
  Transmission Date: 20120403
  Serious: Yes (Hospitalization, Other)
  Sender: FDA-Public Use
  Company Number: NZ-ABBOTT-11P-118-0864193-02

PATIENT
  Sex: Female
  Weight: 56 kg

DRUGS (32)
  1. PEDIALYTE [Concomitant]
     Indication: FLUID IMBALANCE
     Dosage: 500-1000 ML OVER 24 HOURS
     Dates: start: 20091101, end: 20100311
  2. RESOURCE STANDARD [Concomitant]
     Indication: NUTRITIONAL SUPPORT
     Dosage: 2 TO 3 TIMES DAILY
     Dates: start: 20070301
  3. CHOLECALCIFEROL [Concomitant]
     Indication: VITAMIN D DEFICIENCY
     Dosage: MONDAY
     Dates: start: 20091101
  4. METHADONE HCL [Concomitant]
  5. METHADONE HCL [Concomitant]
  6. ACETAMINOPHEN [Concomitant]
     Indication: ABDOMINAL PAIN
     Dates: start: 20040901
  7. METHADONE HCL [Concomitant]
     Indication: ABDOMINAL PAIN
     Dates: start: 20100101, end: 20101209
  8. ENOXAPARIN [Concomitant]
     Dates: start: 20110502
  9. ETHINYL ESTRADIOL AND LEVONORGESTREL [Concomitant]
     Indication: ORAL CONTRACEPTION
  10. PEDIALYTE [Concomitant]
     Indication: NUTRITIONAL SUPPORT
  11. FLUOXETINE [Concomitant]
     Indication: DEPRESSION
     Dates: start: 20090912
  12. FLUOXETINE [Concomitant]
     Indication: ANXIETY
  13. HUMIRA [Concomitant]
     Indication: CROHN'S DISEASE
     Route: 058
  14. ONDANSETRON [Concomitant]
     Indication: VOMITING
     Dosage: 8 HOURLY AS NEEDED
     Dates: start: 20100615
  15. METHADONE HCL [Concomitant]
     Dates: start: 20111009
  16. WARFARIN SODIUM [Concomitant]
     Indication: ANTICOAGULANT THERAPY
     Dosage: 4 TO 5 MG DAILY
     Dates: start: 20110501
  17. ENOXAPARIN [Concomitant]
     Indication: ANTICOAGULANT THERAPY
     Dates: start: 20110501, end: 20110501
  18. ENERLYTE [Concomitant]
     Indication: PROPHYLAXIS AGAINST DEHYDRATION
     Dates: start: 20100310
  19. OMEPRAZOLE [Concomitant]
     Indication: PROPHYLAXIS AGAINST GASTROINTESTINAL ULCER
     Dates: start: 20090901
  20. OXYCODONE HCL [Concomitant]
     Indication: ABDOMINAL PAIN
     Dosage: 10-20 MG PER DAY
     Dates: start: 20090701
  21. HUMIRA [Suspect]
     Indication: CROHN'S DISEASE
     Dosage: BASELINE AND WEEK 2
     Route: 058
     Dates: start: 20091009
  22. CYCLIZINE [Concomitant]
     Indication: NAUSEA
     Dosage: 25-50 MG AS NEEDED
     Dates: start: 20030101
  23. CENTRUM [Concomitant]
     Indication: NUTRITIONAL SUPPORT
     Dates: start: 20091101
  24. SCOPADERM TTS [Concomitant]
     Indication: VOMITING
  25. CHOLECALCIFEROL [Concomitant]
     Indication: PROPHYLAXIS
  26. HUMIRA [Suspect]
     Route: 058
  27. LOPERAMIDE HCL [Concomitant]
     Indication: FAECAL VOLUME INCREASED
     Dosage: 4 TO 4 HOURLY AS NEEDED
     Dates: start: 20040101
  28. SCOPADERM TTS [Concomitant]
     Indication: NAUSEA
     Dates: start: 20091012
  29. METHADONE HCL [Concomitant]
     Dates: start: 20100101
  30. LOPERAMIDE HCL [Concomitant]
     Indication: SHORT-BOWEL SYNDROME
  31. ONDANSETRON [Concomitant]
     Indication: NAUSEA
     Dosage: 1 TO 2
     Dates: start: 20091012, end: 20100615
  32. METHADONE HCL [Concomitant]
     Dates: start: 20100101

REACTIONS (2)
  - CALCULUS URINARY [None]
  - RENAL IMPAIRMENT [None]
